FAERS Safety Report 20757053 (Version 1)
Quarter: 2022Q2

REPORT INFORMATION
  Report Type: Spontaneous
  Country: US (occurrence: US)
  Receive Date: 20220427
  Receipt Date: 20220427
  Transmission Date: 20220720
  Serious: No
  Sender: FDA-Public Use
  Company Number: US-ANIPHARMA-2021-US-012888

PATIENT
  Sex: Female

DRUGS (4)
  1. INDERAL LA [Suspect]
     Active Substance: PROPRANOLOL HYDROCHLORIDE
     Indication: Atrial fibrillation
     Dosage: 120 MG UNTIL APPROXIMATELY 2019 AND THEN ADDED 60 MG (TOTAL 180MG) AS WELL
     Route: 065
     Dates: start: 1985
  2. PRADAXA [Concomitant]
     Active Substance: DABIGATRAN ETEXILATE MESYLATE
  3. DILTIAZEM [Concomitant]
     Active Substance: DILTIAZEM
  4. Amlodipine ER [Concomitant]

REACTIONS (3)
  - Rhinorrhoea [Unknown]
  - Blood pressure increased [Unknown]
  - Off label use [Not Recovered/Not Resolved]

NARRATIVE: CASE EVENT DATE: 19850101
